FAERS Safety Report 9745738 (Version 3)
Quarter: 2019Q2

REPORT INFORMATION
  Report Type: Report from Study
  Country: BE (occurrence: BE)
  Receive Date: 20131211
  Receipt Date: 20190604
  Transmission Date: 20190711
  Serious: Yes (Hospitalization)
  Sender: FDA-Public Use
  Company Number: BE-ROCHE-1311947

PATIENT
  Age: 59 Year
  Sex: Female
  Weight: 65 kg

DRUGS (16)
  1. TRASTUZUMAB. [Suspect]
     Active Substance: TRASTUZUMAB
     Dosage: MAINTENANCE DOSE, LAST DOSE PRIOR TO ADVERSE EVENT: 14/OCT/2013 AT THE DOSE OF 372 MG
     Route: 042
     Dates: end: 20131202
  2. FUROSEMIDE. [Concomitant]
     Active Substance: FUROSEMIDE
     Route: 065
     Dates: start: 20140131
  3. CLEXANE [Concomitant]
     Active Substance: ENOXAPARIN SODIUM
     Route: 065
     Dates: start: 20131127, end: 20131129
  4. FOLAVIT [Concomitant]
     Active Substance: FOLIC ACID
     Route: 065
     Dates: start: 20131129, end: 20140110
  5. PANTOPRAZOLE [Concomitant]
     Active Substance: PANTOPRAZOLE
     Route: 065
     Dates: start: 20140110
  6. PERTUZUMAB. [Suspect]
     Active Substance: PERTUZUMAB
     Dosage: MAINTENANCE DOSE, LAST DOSE PRIOR TO THE EVENT: 14/OCT/2013
     Route: 042
  7. ALDACTONE [Concomitant]
     Active Substance: SPIRONOLACTONE
     Route: 065
     Dates: start: 20131129
  8. RIOPAN [MAGALDRATE] [Concomitant]
     Active Substance: MAGALDRATE
     Route: 065
     Dates: start: 20131021, end: 20131105
  9. OMEPRAZOLE. [Concomitant]
     Active Substance: OMEPRAZOLE
     Route: 065
     Dates: start: 20130820, end: 20140109
  10. PACLITAXEL. [Concomitant]
     Active Substance: PACLITAXEL
     Route: 065
     Dates: start: 20130812, end: 20131028
  11. KREDEX [Concomitant]
     Active Substance: CARVEDILOL
     Route: 065
     Dates: start: 20140131
  12. PERTUZUMAB. [Suspect]
     Active Substance: PERTUZUMAB
     Indication: BREAST CANCER
     Dosage: LOADING DOSE
     Route: 042
     Dates: start: 20130812
  13. TRASTUZUMAB. [Suspect]
     Active Substance: TRASTUZUMAB
     Indication: BREAST CANCER
     Dosage: LOADING DOSE
     Route: 042
     Dates: start: 20130812
  14. BEFACT [CYANOCOBALAMIN;PYRIDOXINE HYDROCHLORIDE;RIBOFLAVIN;THIAMINE MO [Concomitant]
     Active Substance: CYANOCOBALAMIN\PYRIDOXINE\RIBOFLAVIN\THIAMINE
     Route: 065
     Dates: start: 20130901, end: 20140110
  15. RAMIPRIL. [Concomitant]
     Active Substance: RAMIPRIL
     Route: 065
     Dates: start: 20140131
  16. VITAPANTOL [Concomitant]
     Route: 065
     Dates: start: 20131014, end: 20140127

REACTIONS (1)
  - Cardiac failure [Unknown]

NARRATIVE: CASE EVENT DATE: 20131104
